FAERS Safety Report 9900654 (Version 1)
Quarter: 2014Q1

REPORT INFORMATION
  Report Type: Spontaneous
  Country: US (occurrence: US)
  Receive Date: 20140217
  Receipt Date: 20140217
  Transmission Date: 20141002
  Serious: No
  Sender: FDA-Public Use
  Company Number: US-009507513-1402USA006213

PATIENT
  Age: 54 Year
  Sex: Male

DRUGS (5)
  1. TEMOZOLOMIDE [Suspect]
     Indication: MULTIPLE ENDOCRINE NEOPLASIA TYPE 1
     Dosage: 150 MG/M2, BID ON DAYS 10-14 OF THE 28-DAY CYCLE, WITH DAYS 15-28 OFF ALL CHEMOTHERAPY
     Route: 048
  2. CAPECITABINE [Suspect]
     Indication: MULTIPLE ENDOCRINE NEOPLASIA TYPE 1
     Dosage: 1000 MG, BID FOR DAYS 1-14 OF 28-DAY CYCLE
     Route: 048
  3. SANDOSTATIN [Concomitant]
     Dosage: 20 MG, QM (LONG-ACTING RELEASE)
  4. SANDOSTATIN [Concomitant]
     Dosage: 60 MG, QM
  5. MORPHINE [Concomitant]
     Indication: ANALGESIC THERAPY

REACTIONS (1)
  - Drug ineffective [Unknown]
